FAERS Safety Report 6202650-9 (Version None)
Quarter: 2009Q2

REPORT INFORMATION
  Report Type: 
  Country: None (occurrence: None)
  Receive Date: 20090520
  Receipt Date: 20090511
  Transmission Date: 20091009
  Serious: Yes (Other)
  Sender: FDA-Public Use
  Company Number: DE-1169519

PATIENT

DRUGS (1)
  1. BSS [Suspect]
     Dosage: 15 ML INTRAOCULAR
     Route: 031

REACTIONS (2)
  - ANTERIOR CHAMBER FIBRIN [None]
  - ANTERIOR CHAMBER OPACITY [None]
